FAERS Safety Report 11646110 (Version 2)
Quarter: 2016Q2

REPORT INFORMATION
  Report Type: Spontaneous
  Country: US (occurrence: US)
  Receive Date: 20151020
  Receipt Date: 20160429
  Transmission Date: 20160815
  Serious: Yes (Other)
  Sender: FDA-Public Use
  Company Number: US-ROCHE-1604430

PATIENT
  Sex: Female

DRUGS (1)
  1. ESBRIET [Suspect]
     Active Substance: PIRFENIDONE
     Indication: IDIOPATHIC PULMONARY FIBROSIS
     Dosage: 3 CAPS OF 267MG THREE TIMES A DAY
     Route: 048
     Dates: start: 20150212

REACTIONS (8)
  - Skin exfoliation [Unknown]
  - Dry skin [Unknown]
  - Diarrhoea [Unknown]
  - Weight decreased [Unknown]
  - Rash [Unknown]
  - Decreased appetite [Unknown]
  - Gastric disorder [Unknown]
  - Eating disorder [Unknown]
